FAERS Safety Report 14574153 (Version 1)
Quarter: 2018Q1

REPORT INFORMATION
  Report Type: Spontaneous
  Country: US (occurrence: US)
  Receive Date: 20180226
  Receipt Date: 20180226
  Transmission Date: 20180509
  Serious: Yes (Other)
  Sender: FDA-Public Use
  Company Number: US-STANDARD HOMEOPATHIC COMPANY-2042595

PATIENT
  Age: 78 Year
  Sex: Female

DRUGS (4)
  1. HYLAND^S DEFEND COUGH [Suspect]
     Active Substance: HOMEOPATHICS
     Indication: RETCHING
     Route: 048
     Dates: start: 20180213, end: 20180213
  2. HYLAND^S DEFEND COUGH [Suspect]
     Active Substance: HOMEOPATHICS
     Indication: NASOPHARYNGITIS
     Route: 048
     Dates: start: 20180213, end: 20180213
  3. HYLAND^S DEFEND COUGH [Suspect]
     Active Substance: HOMEOPATHICS
     Indication: COUGH
     Route: 048
     Dates: start: 20180213, end: 20180213
  4. HYLAND^S DEFEND COUGH [Suspect]
     Active Substance: HOMEOPATHICS
     Indication: DYSPHONIA
     Route: 048
     Dates: start: 20180213, end: 20180213

REACTIONS (1)
  - Atrial fibrillation [None]

NARRATIVE: CASE EVENT DATE: 20180213
